FAERS Safety Report 7601872-X (Version None)
Quarter: 2011Q3

REPORT INFORMATION
  Report Type: 
  Country: None (occurrence: None)
  Receive Date: 20110711
  Receipt Date: 20110529
  Transmission Date: 20111222
  Serious: No
  Sender: FDA-Public Use
  Company Number: US-BAYER-2011-047500

PATIENT
  Sex: Female

DRUGS (2)
  1. HYDROCODONE BITARTRATE [Concomitant]
     Dosage: DAILY DOSE 1 DF
     Dates: start: 20110501
  2. ALEVE (CAPLET) [Suspect]
     Indication: ANALGESIC THERAPY
     Dosage: DAILY DOSE 4 DF
     Route: 048
     Dates: start: 20110501

REACTIONS (1)
  - NO ADVERSE EVENT [None]
